FAERS Safety Report 5728511-7 (Version None)
Quarter: 2008Q2

REPORT INFORMATION
  Report Type: 
  Country: None (occurrence: None)
  Receive Date: 20080506
  Receipt Date: 20071001
  Transmission Date: 20081010
  Serious: No
  Sender: FDA-Public Use
  Company Number: A0685304A

PATIENT
  Age: 7 Year
  Sex: Male

DRUGS (2)
  1. AMOXICILLIN [Suspect]
     Indication: SINUSITIS
     Route: 048
  2. ALLERGY MEDICATION [Concomitant]

REACTIONS (2)
  - ABDOMINAL PAIN UPPER [None]
  - DRUG INEFFECTIVE [None]
